FAERS Safety Report 9824880 (Version 2)
Quarter: 2014Q2

REPORT INFORMATION
  Report Type: Spontaneous
  Country: US (occurrence: US)
  Receive Date: 20140117
  Receipt Date: 20140410
  Transmission Date: 20141212
  Serious: No
  Sender: FDA-Public Use
  Company Number: US-BIOGENIDEC-2014BI004562

PATIENT
  Age: 35 Year
  Sex: Male

DRUGS (3)
  1. AVONEX [Suspect]
     Indication: MULTIPLE SCLEROSIS
     Route: 030
     Dates: start: 20131209
  2. AVONEX [Suspect]
     Indication: MULTIPLE SCLEROSIS
     Route: 030
     Dates: start: 20131217
  3. AVONEX [Suspect]
     Indication: MULTIPLE SCLEROSIS
     Route: 030
     Dates: start: 201312

REACTIONS (5)
  - Cognitive disorder [Not Recovered/Not Resolved]
  - Nervousness [Unknown]
  - Optic neuritis [Recovered/Resolved]
  - Memory impairment [Recovered/Resolved]
  - Anxiety [Recovered/Resolved]
